FAERS Safety Report 4427356-8 (Version None)
Quarter: 2004Q3

REPORT INFORMATION
  Report Type: 
  Country: None (occurrence: None)
  Receive Date: 20040816
  Receipt Date: 20040816
  Transmission Date: 20050211
  Serious: Yes (Other)
  Sender: FDA-Public Use
  Company Number: None

PATIENT
  Age: 45 Year
  Sex: Female
  Weight: 92.9874 kg

DRUGS (3)
  1. LEXAPRO [Suspect]
     Indication: LIVER FUNCTION TEST ABNORMAL
     Dosage: 20 QD PO
     Route: 048
  2. PROZAC [Suspect]
     Indication: RESTLESS LEGS SYNDROME
     Dosage: 20 QD PO
     Route: 048
  3. KLONOPRIN [Concomitant]

REACTIONS (7)
  - ALANINE AMINOTRANSFERASE INCREASED [None]
  - ASPARTATE AMINOTRANSFERASE INCREASED [None]
  - BLOOD ALKALINE PHOSPHATASE INCREASED [None]
  - DYSPHORIA [None]
  - HEADACHE [None]
  - HOT FLUSH [None]
  - RESTLESS LEGS SYNDROME [None]
